FAERS Safety Report 5411503-5 (Version None)
Quarter: 2007Q3

REPORT INFORMATION
  Report Type: 
  Country: None (occurrence: None)
  Receive Date: 20070810
  Receipt Date: 20070803
  Transmission Date: 20080115
  Serious: Yes (Life-Threatening, Hospitalization, Other)
  Sender: FDA-Public Use
  Company Number: US-PFIZER INC-2007017685

PATIENT
  Sex: Female
  Weight: 54.4 kg

DRUGS (1)
  1. SUTENT [Suspect]
     Indication: METASTATIC RENAL CELL CARCINOMA
     Dates: start: 20070201, end: 20070303

REACTIONS (6)
  - ANAEMIA [None]
  - BLOOD COUNT ABNORMAL [None]
  - BLOOD LACTATE DEHYDROGENASE INCREASED [None]
  - EPISTAXIS [None]
  - HAEMORRHAGE [None]
  - THROMBOCYTOPENIC PURPURA [None]
